FAERS Safety Report 19574209 (Version 4)
Quarter: 2022Q1

REPORT INFORMATION
  Report Type: Spontaneous
  Country: PL (occurrence: PL)
  Receive Date: 20210719
  Receipt Date: 20220315
  Transmission Date: 20220424
  Serious: Yes (Hospitalization, Other)
  Sender: FDA-Public Use
  Company Number: PL-TEVA-2021-PL-1929857

PATIENT
  Age: 62 Year
  Sex: Female

DRUGS (7)
  1. LAMOTRIGINE [Interacting]
     Active Substance: LAMOTRIGINE
     Indication: Epilepsy
     Dosage: 100 MILLIGRAM, ONCE A DAY
     Route: 065
  2. LAMOTRIGINE [Interacting]
     Active Substance: LAMOTRIGINE
     Dosage: 250 MILLIGRAM, DAILY(250 MILLIGRAM DAILY)
     Route: 065
     Dates: start: 2017
  3. LACOSAMIDE [Interacting]
     Active Substance: LACOSAMIDE
     Indication: Epilepsy
     Dosage: 200 MILLIGRAM, DAILY(200 MILLIGRAM DAILY;)
     Route: 065
     Dates: start: 2016
  4. PRIDINOL HYDROCHLORIDE [Suspect]
     Active Substance: PRIDINOL HYDROCHLORIDE
     Indication: Epilepsy
     Dosage: UNK
     Route: 065
     Dates: start: 2020
  5. VALPROIC ACID [Interacting]
     Active Substance: VALPROIC ACID
     Indication: Epilepsy
     Dosage: 1500 MILLIGRAM, DAILY
     Route: 065
  6. VALPROIC ACID [Interacting]
     Active Substance: VALPROIC ACID
     Dosage: 1000 MILLIGRAM, ONCE A DAY
     Route: 065
  7. VALPROIC ACID [Interacting]
     Active Substance: VALPROIC ACID
     Dosage: 1.5 GRAM, ONCE A DAY
     Route: 065

REACTIONS (21)
  - Balance disorder [Recovering/Resolving]
  - Cerebellar syndrome [Recovering/Resolving]
  - Tremor [Recovering/Resolving]
  - Head titubation [Recovering/Resolving]
  - Cognitive disorder [Recovering/Resolving]
  - Loss of personal independence in daily activities [Recovering/Resolving]
  - Intention tremor [Recovering/Resolving]
  - Dissociative disorder [Unknown]
  - White matter lesion [Unknown]
  - Dysmetria [Unknown]
  - Cerebellar syndrome [Recovering/Resolving]
  - Nystagmus [Unknown]
  - Gait disturbance [Recovering/Resolving]
  - Cerebral arteriosclerosis [Unknown]
  - Cerebral atrophy [Unknown]
  - Resting tremor [Unknown]
  - Movement disorder [Unknown]
  - Neurological symptom [Recovering/Resolving]
  - Disability [Recovering/Resolving]
  - Drug interaction [Recovering/Resolving]
  - Therapeutic product effect incomplete [Recovering/Resolving]

NARRATIVE: CASE EVENT DATE: 20200701
